FAERS Safety Report 6725769-2 (Version None)
Quarter: 2010Q2

REPORT INFORMATION
  Report Type: 
  Country: None (occurrence: None)
  Receive Date: 20100513
  Receipt Date: 20100513
  Transmission Date: 20101027
  Serious: Yes (Other)
  Sender: FDA-Public Use
  Company Number: None

PATIENT
  Age: 59 Year
  Sex: Male
  Weight: 109.3169 kg

DRUGS (1)
  1. AVODART [Suspect]
     Indication: POLLAKIURIA
     Dosage: .5MG 1 TAB PO
     Route: 048
     Dates: start: 20091215, end: 20100511

REACTIONS (3)
  - ABDOMINAL DISCOMFORT [None]
  - ABDOMINAL DISTENSION [None]
  - DIARRHOEA [None]
